FAERS Safety Report 7745716-4 (Version None)
Quarter: 2011Q3

REPORT INFORMATION
  Report Type: 
  Country: None (occurrence: None)
  Receive Date: 20110907
  Receipt Date: 20110822
  Transmission Date: 20111222
  Serious: Yes (Congenital Anomaly)
  Sender: FDA-Public Use
  Company Number: THQ2011A05367

PATIENT

DRUGS (2)
  1. LANSOPRAZOLE [Suspect]
     Indication: DYSPEPSIA
     Dosage: 30 MG (30 MG, 1 IN 1 D), TRANSPLACENTAL
     Route: 064
     Dates: start: 20100817, end: 20101111
  2. RIZATRIPTAN [Concomitant]

REACTIONS (7)
  - PREMATURE LABOUR [None]
  - INDUCED LABOUR [None]
  - CONGENITAL ANOMALY [None]
  - MATERNAL DRUGS AFFECTING FOETUS [None]
  - TURNER'S SYNDROME [None]
  - ABORTION SPONTANEOUS [None]
  - INTRA-UTERINE DEATH [None]
